FAERS Safety Report 23949973 (Version 1)
Quarter: 2024Q2

REPORT INFORMATION
  Report Type: Spontaneous
  Country: US (occurrence: None)
  Receive Date: 20240606
  Receipt Date: 20240606
  Transmission Date: 20240715
  Serious: Yes (Other)
  Sender: FDA-Public Use
  Company Number: None

PATIENT
  Age: 30 Year
  Sex: Female
  Weight: 78.75 kg

DRUGS (10)
  1. GADAVIST [Suspect]
     Active Substance: GADOBUTROL
     Indication: Contrast media reaction
     Dates: start: 20240606
  2. PROPRANOLOL [Concomitant]
     Active Substance: PROPRANOLOL HYDROCHLORIDE
  3. VALTREX [Concomitant]
     Active Substance: VALACYCLOVIR HYDROCHLORIDE
  4. FAMOTIDINE [Concomitant]
  5. vitamins B12/B complex [Concomitant]
  6. VIT C [Concomitant]
  7. VITAMIN D NOS [Concomitant]
     Active Substance: CHOLECALCIFEROL\ERGOCALCIFEROL
  8. turmeric [Concomitant]
  9. MELATONIN [Concomitant]
  10. COLLAGEN [Concomitant]
     Active Substance: COLLAGEN

REACTIONS (5)
  - Feeling abnormal [None]
  - Feeling abnormal [None]
  - Visual impairment [None]
  - Dizziness [None]
  - Headache [None]

NARRATIVE: CASE EVENT DATE: 20240606
